FAERS Safety Report 4446004-4 (Version None)
Quarter: 2004Q3

REPORT INFORMATION
  Report Type: 
  Country: None (occurrence: None)
  Receive Date: 20040910
  Receipt Date: 20040518
  Transmission Date: 20050211
  Serious: Yes (Hospitalization)
  Sender: FDA-Public Use
  Company Number: DE-BRISTOL-MYERS SQUIBB COMPANY-12590535

PATIENT
  Age: 64 Year
  Sex: Male
  Weight: 84 kg

DRUGS (6)
  1. TAXOL [Suspect]
     Indication: NON-SMALL CELL LUNG CANCER
     Dosage: CYCLE 1, DAY 1: 22-JAN-04; CYCLE 1, DAY 8: 29-JAN-04; CYCLE 1, DAY 15: 05-FEB-04
     Route: 042
     Dates: start: 20040205, end: 20040205
  2. CARBOPLATIN [Suspect]
     Indication: NON-SMALL CELL LUNG CANCER
     Route: 042
     Dates: start: 20040122, end: 20040122
  3. KEVATRIL [Concomitant]
     Indication: PREMEDICATION
     Route: 042
     Dates: start: 20040122, end: 20040122
  4. SOSTRIL [Concomitant]
     Indication: PREMEDICATION
     Route: 042
     Dates: start: 20040122, end: 20040122
  5. TAVEGIL [Concomitant]
     Indication: PREMEDICATION
     Route: 042
     Dates: start: 20040129, end: 20040129
  6. DEXAMETHASONE [Concomitant]
     Indication: PREMEDICATION
     Route: 042
     Dates: start: 20040205, end: 20040205

REACTIONS (1)
  - PNEUMONIA [None]
